FAERS Safety Report 5408257-5 (Version None)
Quarter: 2007Q3

REPORT INFORMATION
  Report Type: 
  Country: None (occurrence: None)
  Receive Date: 20070806
  Receipt Date: 20070806
  Transmission Date: 20080115
  Serious: Yes (Hospitalization)
  Sender: FDA-Public Use
  Company Number: None

PATIENT
  Age: 80 Year
  Sex: Male
  Weight: 100.1089 kg

DRUGS (1)
  1. BUMETANIDE [Suspect]
     Indication: HYPERTENSION
     Dosage: 2MG BID PO
     Route: 048
     Dates: start: 20070417, end: 20070423

REACTIONS (2)
  - DEHYDRATION [None]
  - HYPOKALAEMIA [None]
